FAERS Safety Report 4899140-2 (Version None)
Quarter: 2006Q1

REPORT INFORMATION
  Report Type: 
  Country: None (occurrence: None)
  Receive Date: 20060202
  Receipt Date: 20060131
  Transmission Date: 20060701
  Serious: Yes (Other)
  Sender: FDA-Public Use
  Company Number: JP-SANOFI-SYNTHELABO-F01200600253

PATIENT
  Age: 67 Year
  Sex: Male
  Weight: 65 kg

DRUGS (3)
  1. OXALIPLATIN [Suspect]
     Indication: COLON CANCER
     Route: 042
     Dates: start: 20050810, end: 20050810
  2. FLUOROURACIL [Suspect]
     Dosage: 625MG/BODY=369.8MG/M2 IN BOLUS THEN 1000MG/BODY=591.7MG/M2 AS CONTINUOUS INFUSION ON DAYS 1 AND 2
     Route: 042
     Dates: start: 20050810, end: 20050811
  3. CALCIUM LEVOFOLINATE [Suspect]
     Route: 042
     Dates: start: 20050810, end: 20050811

REACTIONS (2)
  - ANOREXIA [None]
  - GASTRIC ULCER [None]
